FAERS Safety Report 4968708-7 (Version None)
Quarter: 2006Q2

REPORT INFORMATION
  Report Type: 
  Country: None (occurrence: None)
  Receive Date: 20060411
  Receipt Date: 20060330
  Transmission Date: 20061013
  Serious: Yes (Hospitalization, Other)
  Sender: FDA-Public Use
  Company Number: PHNU2006DE01518

PATIENT
  Age: 50 Year
  Sex: Female
  Weight: 55 kg

DRUGS (1)
  1. ZOMETA [Suspect]
     Indication: BREAST CANCER FEMALE
     Dates: start: 20030201, end: 20050101

REACTIONS (7)
  - IMPAIRED HEALING [None]
  - ORAL SURGERY [None]
  - OSTEOMYELITIS [None]
  - SEQUESTRECTOMY [None]
  - SUTURE INSERTION [None]
  - TOOTH EXTRACTION [None]
  - WOUND DEBRIDEMENT [None]
